FAERS Safety Report 6750973-7 (Version None)
Quarter: 2010Q2

REPORT INFORMATION
  Report Type: 
  Country: None (occurrence: None)
  Receive Date: 20100602
  Receipt Date: 20100524
  Transmission Date: 20101027
  Serious: Yes (Hospitalization)
  Sender: FDA-Public Use
  Company Number: IL-JNJFOC-20100509802

PATIENT
  Age: 58 Year
  Sex: Male

DRUGS (1)
  1. REMICADE [Suspect]
     Indication: PSORIASIS
     Dosage: RECEIVED 7 INFUSIONS
     Route: 042

REACTIONS (1)
  - HERPES ZOSTER [None]
